FAERS Safety Report 5086617-2 (Version None)
Quarter: 2006Q3

REPORT INFORMATION
  Report Type: 
  Country: None (occurrence: None)
  Receive Date: 20060823
  Receipt Date: 20060512
  Transmission Date: 20061208
  Serious: Yes (Hospitalization)
  Sender: FDA-Public Use
  Company Number: PHBS2006JP07231

PATIENT
  Age: 9 Year
  Sex: Female

DRUGS (4)
  1. GLEEVEC [Suspect]
     Indication: ACUTE LYMPHOCYTIC LEUKAEMIA
     Dosage: UNK, UNK
     Route: 048
     Dates: start: 20060502, end: 20060516
  2. ONCOVIN [Concomitant]
     Route: 042
     Dates: start: 20060501, end: 20060508
  3. ADRIAMYCIN PFS [Concomitant]
     Route: 042
     Dates: start: 20060501, end: 20060501
  4. MODACIN [Suspect]
     Route: 042
     Dates: start: 20060511, end: 20060517

REACTIONS (6)
  - ABDOMINAL PAIN [None]
  - BLOOD AMYLASE INCREASED [None]
  - CHROMATURIA [None]
  - GASTROINTESTINAL INFLAMMATION [None]
  - REVERSIBLE POSTERIOR LEUKOENCEPHALOPATHY SYNDROME [None]
  - URINE OUTPUT DECREASED [None]
